FAERS Safety Report 4293298-4 (Version None)
Quarter: 2004Q1

REPORT INFORMATION
  Report Type: 
  Country: None (occurrence: None)
  Receive Date: 20040126
  Receipt Date: 20021023
  Transmission Date: 20041129
  Serious: No
  Sender: FDA-Public Use
  Company Number: USA031050756

PATIENT
  Age: 72 Year
  Sex: Male

DRUGS (1)
  1. FORTEO [Suspect]
     Dosage: 20 UG/DAY

REACTIONS (4)
  - ABNORMAL SLEEP-RELATED EVENT [None]
  - CHILLS [None]
  - FEELING ABNORMAL [None]
  - PAIN IN EXTREMITY [None]
